FAERS Safety Report 7703853-4 (Version None)
Quarter: 2011Q3

REPORT INFORMATION
  Report Type: 
  Country: None (occurrence: None)
  Receive Date: 20110823
  Receipt Date: 20100917
  Transmission Date: 20111222
  Serious: No
  Sender: FDA-Public Use
  Company Number: US-BAYER-201038209NA

PATIENT
  Age: 40 Year
  Sex: Female

DRUGS (2)
  1. BETADINE [Concomitant]
     Indication: ANTI-INFECTIVE THERAPY
     Dosage: 3 TIMES
     Route: 067
     Dates: start: 20100607, end: 20100607
  2. MIRENA [Suspect]

REACTIONS (2)
  - COMPLICATION OF DEVICE INSERTION [None]
  - UTERINE SPASM [None]
